FAERS Safety Report 8791740 (Version 1)
Quarter: 2012Q4

REPORT INFORMATION
  Report Type: 
  Country: US (occurrence: US)
  Receive Date: 20120918
  Receipt Date: 20120918
  Transmission Date: 20130627
  Serious: Yes (Death)
  Sender: FDA-Public Use
  Company Number: US-INCYTE CORPORATION-2012IN001741

PATIENT
  Sex: Female

DRUGS (11)
  1. JAKAFI [Suspect]
     Dosage: 5 mg, bid
     Route: 048
  2. TRICOR [Concomitant]
  3. GABAPENTIN [Concomitant]
  4. METANX [Concomitant]
  5. LOVASTATIN [Concomitant]
  6. ACIPHEX [Concomitant]
  7. LISINOPRIL [Concomitant]
  8. EVISTA [Concomitant]
  9. METFORMIN [Concomitant]
  10. ALPRAZOLAM [Concomitant]
  11. ASPIRIN [Concomitant]
     Dosage: 81 mg, UNK

REACTIONS (1)
  - Death [Fatal]
